FAERS Safety Report 7626740-9 (Version None)
Quarter: 2011Q3

REPORT INFORMATION
  Report Type: 
  Country: None (occurrence: None)
  Receive Date: 20110721
  Receipt Date: 20110709
  Transmission Date: 20111222
  Serious: Yes (Other)
  Sender: FDA-Public Use
  Company Number: US-ELI_LILLY_AND_COMPANY-US201107004059

PATIENT
  Sex: Male

DRUGS (4)
  1. OXYCONTIN [Concomitant]
  2. VICODIN [Concomitant]
  3. CYMBALTA [Suspect]
     Indication: DEPRESSION
     Dosage: 60 MG, UNKNOWN
  4. CYMBALTA [Suspect]
     Dosage: 60 MG, UNKNOWN
     Dates: start: 20110709

REACTIONS (9)
  - INTENTIONAL DRUG MISUSE [None]
  - AGITATION [None]
  - SUICIDAL IDEATION [None]
  - ACCIDENT [None]
  - DRUG WITHDRAWAL SYNDROME [None]
  - FATIGUE [None]
  - BACK INJURY [None]
  - HYPERSOMNIA [None]
  - ANGER [None]
